FAERS Safety Report 9696483 (Version 2)
Quarter: 2016Q1

REPORT INFORMATION
  Report Type: Report from Study
  Country: US (occurrence: US)
  Receive Date: 20131119
  Receipt Date: 20160120
  Transmission Date: 20160526
  Serious: Yes (Hospitalization, Other)
  Sender: FDA-Public Use
  Company Number: US-BAXTER-2013BAX045473

PATIENT
  Age: 48 Year
  Sex: Male
  Weight: 92.8 kg

DRUGS (2)
  1. VELCADE [Suspect]
     Active Substance: BORTEZOMIB
     Indication: PLASMA CELL MYELOMA
     Route: 065
     Dates: start: 20130501, end: 20130604
  2. CYCLOPHOSPHAMIDE FOR INJECTION, USP [Suspect]
     Active Substance: CYCLOPHOSPHAMIDE
     Indication: PLASMA CELL MYELOMA
     Route: 065
     Dates: start: 20130501, end: 20130604

REACTIONS (2)
  - Mental status changes [Recovered/Resolved]
  - Neutropenia [Unknown]

NARRATIVE: CASE EVENT DATE: 20130529
